FAERS Safety Report 5485344-7 (Version None)
Quarter: 2007Q4

REPORT INFORMATION
  Report Type: 
  Country: None (occurrence: None)
  Receive Date: 20071015
  Receipt Date: 20070822
  Transmission Date: 20080405
  Serious: Yes (Other)
  Sender: FDA-Public Use
  Company Number: US-PURDUE-USA_2007_0029030

PATIENT
  Sex: Female

DRUGS (5)
  1. OXYCONTIN [Suspect]
     Indication: PAIN
  2. CELEBREX [Concomitant]
     Dosage: 200 MG, DAILY
  3. SYNTHROID [Concomitant]
     Dosage: .125 MG, DAILY
  4. ZESTRIL [Concomitant]
     Dosage: 20 MG, DAILY
  5. LEVOTHROID [Concomitant]
     Dosage: .137 MG, DAILY

REACTIONS (6)
  - ABSCESS INTESTINAL [None]
  - BACK PAIN [None]
  - DIVERTICULITIS [None]
  - PERITONITIS [None]
  - RESECTION OF RECTUM [None]
  - SURGICAL PROCEDURE REPEATED [None]
